FAERS Safety Report 6717993-X (Version None)
Quarter: 2010Q2

REPORT INFORMATION
  Report Type: 
  Country: None (occurrence: None)
  Receive Date: 20100510
  Receipt Date: 20100506
  Transmission Date: 20101027
  Serious: Yes (Death)
  Sender: FDA-Public Use
  Company Number: PHHY2010TW29337

PATIENT
  Age: 61 Year
  Sex: Male

DRUGS (2)
  1. CYCLOSPORINE [Suspect]
     Indication: HEART TRANSPLANT
     Dosage: UNK
     Dates: start: 20041225
  2. STEROIDS NOS [Suspect]
     Indication: HEART TRANSPLANT

REACTIONS (2)
  - ABDOMINAL INFECTION [None]
  - ABDOMINAL SEPSIS [None]
